FAERS Safety Report 17326629 (Version 1)
Quarter: 2020Q1

REPORT INFORMATION
  Report Type: Spontaneous
  Country: GB (occurrence: GB)
  Receive Date: 20200127
  Receipt Date: 20200127
  Transmission Date: 20200409
  Serious: Yes (Disabling, Other)
  Sender: FDA-Public Use
  Company Number: GB-MYLANLABS-2020M1007996

PATIENT
  Age: 51 Year
  Sex: Female
  Weight: 123.82 kg

DRUGS (1)
  1. PREGABALIN. [Suspect]
     Active Substance: PREGABALIN
     Indication: GENERALISED ANXIETY DISORDER
     Dosage: 75 MILLIGRAM, QD
     Route: 048
     Dates: start: 20191015, end: 20191020

REACTIONS (2)
  - Feeling abnormal [Not Recovered/Not Resolved]
  - Insomnia [Not Recovered/Not Resolved]
